FAERS Safety Report 25720880 (Version 1)
Quarter: 2025Q3

REPORT INFORMATION
  Report Type: Spontaneous
  Country: EU (occurrence: EU)
  Receive Date: 20250825
  Receipt Date: 20250825
  Transmission Date: 20251021
  Serious: Yes (Other)
  Sender: LEGACY PHARMACEUTICAL PACKAGING
  Company Number: EU-LEGACY PHARMA INC. SEZC-LGP202508-000241

PATIENT
  Age: 28 Year
  Sex: Male

DRUGS (2)
  1. PAROXETINE MESYLATE [Suspect]
     Active Substance: PAROXETINE MESYLATE
     Indication: Anxiety
     Route: 065
  2. PAROXETINE MESYLATE [Suspect]
     Active Substance: PAROXETINE MESYLATE
     Indication: Panic attack

REACTIONS (2)
  - Urticarial vasculitis [Recovered/Resolved]
  - Product used for unknown indication [Unknown]
